FAERS Safety Report 12537960 (Version 1)
Quarter: 2016Q3

REPORT INFORMATION
  Report Type: Spontaneous
  Country: DE (occurrence: DE)
  Receive Date: 20160707
  Receipt Date: 20160707
  Transmission Date: 20161109
  Serious: Yes (Hospitalization)
  Sender: FDA-Public Use
  Company Number: DE-TEVA-672068GER

PATIENT
  Sex: Male

DRUGS (1)
  1. CLINDAMYCIN 600 MG [Suspect]
     Active Substance: CLINDAMYCIN\CLINDAMYCIN PHOSPHATE
     Route: 048

REACTIONS (3)
  - Blood pressure increased [Unknown]
  - Hospitalisation [Unknown]
  - Rash [Unknown]
